FAERS Safety Report 7786300-6 (Version None)
Quarter: 2011Q3

REPORT INFORMATION
  Report Type: 
  Country: None (occurrence: None)
  Receive Date: 20110929
  Receipt Date: 20110919
  Transmission Date: 20111222
  Serious: Yes (Other)
  Sender: FDA-Public Use
  Company Number: PHFR2010GB04879

PATIENT
  Sex: Female
  Weight: 108 kg

DRUGS (2)
  1. CLOZAPINE [Suspect]
     Indication: SCHIZOPHRENIA
     Route: 048
     Dates: start: 20091208
  2. CLOZAPINE [Suspect]
     Dosage: 500 MG, QD
     Route: 048

REACTIONS (5)
  - PROTEIN URINE [None]
  - NORMAL NEWBORN [None]
  - FOETAL HYPOKINESIA [None]
  - BLOOD PRESSURE INCREASED [None]
  - MATERNAL EXPOSURE DURING PREGNANCY [None]
